FAERS Safety Report 9780275 (Version 1)
Quarter: 2013Q4

REPORT INFORMATION
  Report Type: Report from Study
  Country: US (occurrence: US)
  Receive Date: 20131223
  Receipt Date: 20131223
  Transmission Date: 20140711
  Serious: Yes (Death, Hospitalization)
  Sender: FDA-Public Use
  Company Number: US-CELGENEUS-163-50794-13123073

PATIENT
  Age: 77 Year
  Sex: Male

DRUGS (26)
  1. VIDAZA [Suspect]
     Indication: ACUTE MYELOID LEUKAEMIA
     Dosage: 155 MILLIGRAM
     Route: 065
     Dates: start: 20111017, end: 20111021
  2. VIDAZA [Suspect]
     Indication: MYELODYSPLASTIC SYNDROME
     Dosage: 160.5 MILLIGRAM
     Route: 065
     Dates: start: 20110815, end: 20110819
  3. PLERIXAFOR [Suspect]
     Indication: ACUTE MYELOID LEUKAEMIA
     Dosage: 31000 MICROGRAM
     Route: 065
     Dates: start: 20110815, end: 20110819
  4. PLERIXAFOR [Suspect]
     Indication: MYELODYSPLASTIC SYNDROME
     Dosage: 28000 MICROGRAM
     Route: 065
     Dates: start: 20111017, end: 20111021
  5. GRANULOCYTE COLONY-STIMULATING FACTOR NOS [Suspect]
     Indication: ACUTE MYELOID LEUKAEMIA
     Dosage: 475 MICROGRAM
     Route: 065
     Dates: start: 20110815, end: 20110819
  6. GRANULOCYTE COLONY-STIMULATING FACTOR NOS [Suspect]
     Indication: MYELODYSPLASTIC SYNDROME
     Dosage: 440 MICROGRAM
     Route: 065
     Dates: start: 20111017, end: 20111021
  7. PRAVASTATIN [Concomitant]
     Indication: PRODUCT USED FOR UNKNOWN INDICATION
     Route: 048
  8. ACYCLOVIR [Concomitant]
     Indication: PRODUCT USED FOR UNKNOWN INDICATION
     Dosage: 1200 MILLIGRAM
     Route: 048
  9. ALLOPURINOL [Concomitant]
     Indication: PRODUCT USED FOR UNKNOWN INDICATION
     Dosage: 200 MILLIGRAM
     Route: 048
     Dates: start: 20111018, end: 20111104
  10. AMIODARONE [Concomitant]
     Indication: ATRIAL FIBRILLATION
     Dosage: 800 MILLIGRAM
     Route: 048
  11. ANTIBIOTICS [Concomitant]
     Indication: PRESYNCOPE
     Route: 041
  12. FUNGAL MEDICATIONS [Concomitant]
     Indication: PRESYNCOPE
     Route: 041
  13. AMOXICILLIN-POT CLAVULANATE [Concomitant]
     Indication: PRODUCT USED FOR UNKNOWN INDICATION
     Dosage: 875-125MG
     Route: 048
  14. ATENOLOL [Concomitant]
     Indication: PRODUCT USED FOR UNKNOWN INDICATION
     Dosage: 50 MILLIGRAM
     Route: 048
  15. BUTALBITAL-APAP-CAFF-COD [Concomitant]
     Indication: PRODUCT USED FOR UNKNOWN INDICATION
     Dosage: 50-325-40-30MG
     Route: 048
     Dates: start: 20110927, end: 20111104
  16. FLUTICASONE PROPIONATE [Concomitant]
     Indication: PRODUCT USED FOR UNKNOWN INDICATION
     Dosage: 50MCG/ACT 2 SPRAYS
     Route: 045
     Dates: start: 20110926, end: 20111104
  17. LISINOPRIL [Concomitant]
     Indication: PRODUCT USED FOR UNKNOWN INDICATION
     Dosage: 10 MILLIGRAM
     Route: 048
  18. METFORMIN HCL [Concomitant]
     Indication: PRODUCT USED FOR UNKNOWN INDICATION
     Dosage: 1000 MILLIGRAM
     Route: 048
  19. METRONIDAZOLE [Concomitant]
     Indication: CLOSTRIDIUM DIFFICILE COLITIS
     Dosage: 1500 MILLIGRAM
     Route: 048
  20. OMEPRAZOLE [Concomitant]
     Indication: PRODUCT USED FOR UNKNOWN INDICATION
     Dosage: 40 MILLIGRAM
     Route: 048
     Dates: start: 20101112, end: 20111104
  21. OXYCODONE HCL [Concomitant]
     Indication: PRODUCT USED FOR UNKNOWN INDICATION
     Route: 048
  22. POTASSIUM CHLORIDE [Concomitant]
     Indication: PRODUCT USED FOR UNKNOWN INDICATION
     Dosage: 40 MILLIEQUIVALENTS
     Route: 048
     Dates: start: 20100701, end: 20111104
  23. WARFARIN SODIUM [Concomitant]
     Indication: PRODUCT USED FOR UNKNOWN INDICATION
     Dosage: 1 MILLIGRAM
     Route: 048
     Dates: start: 20110513, end: 20111104
  24. CEFAZOLIN [Concomitant]
     Indication: PRODUCT USED FOR UNKNOWN INDICATION
     Route: 065
  25. AUGMENTIN [Concomitant]
     Indication: PRODUCT USED FOR UNKNOWN INDICATION
     Dosage: 1750 MILLIGRAM
     Route: 065
  26. ZOLPIDEM TARTRATE [Concomitant]
     Indication: PRODUCT USED FOR UNKNOWN INDICATION
     Dosage: 10 MILLIGRAM
     Route: 048
     Dates: start: 20110823, end: 20111104

REACTIONS (6)
  - Acute myeloid leukaemia [Fatal]
  - Epistaxis [Recovering/Resolving]
  - Epistaxis [Unknown]
  - Febrile neutropenia [Unknown]
  - Cellulitis [Unknown]
  - Sinusitis fungal [Recovered/Resolved]
